FAERS Safety Report 24557201 (Version 1)
Quarter: 2024Q4

REPORT INFORMATION
  Report Type: Spontaneous
  Country: US (occurrence: None)
  Receive Date: 20241028
  Receipt Date: 20241028
  Transmission Date: 20250115
  Serious: Yes (Disabling)
  Sender: Public
  Company Number: None

PATIENT
  Age: 24 Year
  Sex: Female
  Weight: 50.4 kg

DRUGS (11)
  1. CIPROFLOXACIN [Suspect]
     Active Substance: CIPROFLOXACIN
     Indication: Urinary tract infection
     Dosage: FREQUENCY : EVERY 12 HOURS;?
     Route: 048
     Dates: start: 20240520, end: 20240521
  2. LORYNA [Concomitant]
     Active Substance: DROSPIRENONE\ETHINYL ESTRADIOL
  3. NADOLOL [Concomitant]
     Active Substance: NADOLOL
  4. NALTREXONE [Concomitant]
     Active Substance: NALTREXONE
  5. DIAPLEX [Concomitant]
  6. Lactic Acid Yeast [Concomitant]
  7. HERBALS\WITHANIA SOMNIFERA ROOT [Concomitant]
     Active Substance: HERBALS\WITHANIA SOMNIFERA ROOT
  8. OMEGA 3 [Concomitant]
     Active Substance: CAPSAICIN
  9. VITAMIN D [Concomitant]
     Active Substance: VITAMIN D NOS
  10. MAGNESIUM [Concomitant]
     Active Substance: MAGNESIUM
  11. PROBIOTICS NOS [Concomitant]
     Active Substance: PROBIOTICS NOS

REACTIONS (24)
  - Tendon pain [None]
  - Arthralgia [None]
  - Pain in extremity [None]
  - Gait disturbance [None]
  - Gait disturbance [None]
  - Fatigue [None]
  - Anxiety [None]
  - Insomnia [None]
  - Myalgia [None]
  - Muscle spasms [None]
  - Arthralgia [None]
  - Brain fog [None]
  - Asthenia [None]
  - Burning sensation [None]
  - Paraesthesia [None]
  - Neuropathy peripheral [None]
  - Loss of personal independence in daily activities [None]
  - Vitamin B complex deficiency [None]
  - Vitamin D decreased [None]
  - Unevaluable event [None]
  - Blood cholesterol increased [None]
  - Cortisol increased [None]
  - Blood copper increased [None]
  - Blood insulin decreased [None]

NARRATIVE: CASE EVENT DATE: 20240520
